FAERS Safety Report 5009615-3 (Version None)
Quarter: 2006Q2

REPORT INFORMATION
  Report Type: 
  Country: None (occurrence: None)
  Receive Date: 20060524
  Receipt Date: 20060516
  Transmission Date: 20061013
  Serious: Yes (Hospitalization)
  Sender: FDA-Public Use
  Company Number: 2006PK01117

PATIENT
  Age: 29996 Day
  Sex: Male
  Weight: 72 kg

DRUGS (9)
  1. BELOC  ZOK MITE [Suspect]
     Indication: CARDIAC FAILURE
     Route: 048
     Dates: start: 20051115, end: 20051120
  2. NEXIUM [Concomitant]
     Dates: start: 20030101, end: 20050521
  3. ASPIRIN [Concomitant]
     Route: 048
     Dates: start: 19900101, end: 20051121
  4. DELIX [Concomitant]
     Route: 048
     Dates: start: 20020101, end: 20051121
  5. HCT [Concomitant]
     Dates: start: 20051101, end: 20051121
  6. MULTI-VITAMIN [Concomitant]
     Route: 048
     Dates: end: 20051121
  7. CENTRUM [Concomitant]
     Dates: end: 20051121
  8. ASPIRIN [Concomitant]
     Route: 048
     Dates: start: 19400101, end: 20051121
  9. ALLOPURINOL [Concomitant]
     Route: 048
     Dates: start: 19960101, end: 20051121

REACTIONS (1)
  - AUTOIMMUNE THROMBOCYTOPENIA [None]
